FAERS Safety Report 10370054 (Version 1)
Quarter: 2014Q3

REPORT INFORMATION
  Report Type: Spontaneous
  Country: US (occurrence: US)
  Receive Date: 20140808
  Receipt Date: 20140808
  Transmission Date: 20150326
  Serious: No
  Sender: FDA-Public Use
  Company Number: US-AMGEN INC.-USASP2014059340

PATIENT
  Age: 29 Year
  Sex: Female

DRUGS (3)
  1. KLONOPIN [Concomitant]
     Active Substance: CLONAZEPAM
     Indication: ANXIETY
     Dosage: 2 MG, BID
  2. KLONOPIN [Concomitant]
     Active Substance: CLONAZEPAM
     Indication: DEPRESSION
  3. ENBREL [Suspect]
     Active Substance: ETANERCEPT
     Indication: PRODUCT USED FOR UNKNOWN INDICATION
     Dosage: UNK
     Route: 065
     Dates: start: 201405, end: 201406

REACTIONS (19)
  - Impaired work ability [Unknown]
  - Bone swelling [Unknown]
  - Skin exfoliation [Unknown]
  - Musculoskeletal discomfort [Unknown]
  - Arthralgia [Unknown]
  - Feeling abnormal [Unknown]
  - Joint instability [Unknown]
  - Weight bearing difficulty [Unknown]
  - Scar [Unknown]
  - Dermatitis contact [Recovered/Resolved]
  - Rash [Unknown]
  - Drug hypersensitivity [Unknown]
  - Skin warm [Unknown]
  - Joint lock [Unknown]
  - Joint swelling [Unknown]
  - Local swelling [Unknown]
  - Drug ineffective [Unknown]
  - Skin discolouration [Unknown]
  - Bone pain [Unknown]

NARRATIVE: CASE EVENT DATE: 2014
